FAERS Safety Report 23332363 (Version 3)
Quarter: 2024Q1

REPORT INFORMATION
  Report Type: Spontaneous
  Country: FR (occurrence: FR)
  Receive Date: 20231222
  Receipt Date: 20240306
  Transmission Date: 20240410
  Serious: Yes (Hospitalization)
  Sender: FDA-Public Use
  Company Number: FR-BAYER-2023A181082

PATIENT
  Age: 75 Year
  Sex: Male
  Weight: 103 kg

DRUGS (2)
  1. STIVARGA [Suspect]
     Active Substance: REGORAFENIB
     Indication: Colorectal cancer metastatic
     Dosage: 80 MG, QD
     Dates: start: 20231030, end: 20231117
  2. STIVARGA [Suspect]
     Active Substance: REGORAFENIB
     Indication: Colorectal cancer metastatic
     Dosage: 80 MG, QD
     Dates: start: 20231212

REACTIONS (4)
  - Fall [Recovered/Resolved]
  - Skin wound [None]
  - General physical health deterioration [Recovered/Resolved]
  - Off label use [None]

NARRATIVE: CASE EVENT DATE: 20231030
